FAERS Safety Report 14962883 (Version 1)
Quarter: 2018Q2

REPORT INFORMATION
  Report Type: Spontaneous
  Country: US (occurrence: US)
  Receive Date: 20180601
  Receipt Date: 20180601
  Transmission Date: 20180711
  Serious: Yes (Other)
  Sender: FDA-Public Use
  Company Number: PHHY2018US010621

PATIENT
  Age: 64 Year
  Sex: Male

DRUGS (4)
  1. WARFARIN [Suspect]
     Active Substance: WARFARIN
     Indication: CARDIAC ANEURYSM
     Route: 065
  2. ENOXAPARIN [Suspect]
     Active Substance: ENOXAPARIN
     Indication: THROMBOSIS
  3. ENOXAPARIN [Suspect]
     Active Substance: ENOXAPARIN
     Indication: CARDIAC ANEURYSM
     Route: 065
  4. WARFARIN [Suspect]
     Active Substance: WARFARIN
     Indication: THROMBOSIS

REACTIONS (1)
  - Blood blister [Recovered/Resolved]
